FAERS Safety Report 8252484-9 (Version None)
Quarter: 2012Q2

REPORT INFORMATION
  Report Type: 
  Country: None (occurrence: None)
  Receive Date: 20120402
  Receipt Date: 20110715
  Transmission Date: 20120825
  Serious: No
  Sender: FDA-Public Use
  Company Number: US-ABBOTT-11P-163-0839950-00

PATIENT
  Sex: Male
  Weight: 88.53 kg

DRUGS (3)
  1. LISINOPRIL [Concomitant]
     Indication: HYPERTENSION
  2. ANDROGEL [Suspect]
     Indication: BLOOD TESTOSTERONE DECREASED
     Dosage: 1.25 GRAMS - 6 PUMPS
  3. ANDROGEL [Suspect]
     Dosage: 3 PACKETS

REACTIONS (1)
  - DIARRHOEA [None]
